FAERS Safety Report 18422563 (Version 16)
Quarter: 2022Q1

REPORT INFORMATION
  Report Type: Spontaneous
  Country: CA (occurrence: CA)
  Receive Date: 20201023
  Receipt Date: 20220107
  Transmission Date: 20220423
  Serious: Yes (Other)
  Sender: FDA-Public Use
  Company Number: CA-PFIZER INC-2020409142

PATIENT
  Age: 45 Year
  Sex: Female
  Weight: 70 kg

DRUGS (33)
  1. RUXIENCE [Suspect]
     Active Substance: RITUXIMAB-PVVR
     Indication: Granulomatosis with polyangiitis
     Dosage: 667.125 MG, WEEKLY FOR 4 WEEKS
     Route: 042
     Dates: start: 20201020, end: 20201020
  2. RUXIENCE [Suspect]
     Active Substance: RITUXIMAB-PVVR
     Dosage: 667.125 MG, WEEKLY FOR 4 WEEKS
     Route: 042
     Dates: start: 20201020, end: 20201020
  3. RUXIENCE [Suspect]
     Active Substance: RITUXIMAB-PVVR
     Dosage: 667.125MG WEEKLY FOR 4 WEEKS
     Route: 042
     Dates: start: 20201020, end: 20201110
  4. RUXIENCE [Suspect]
     Active Substance: RITUXIMAB-PVVR
     Dosage: 667.125 MG, WEEKLY FOR 4 WEEKS
     Route: 042
     Dates: start: 20201027, end: 20201027
  5. RUXIENCE [Suspect]
     Active Substance: RITUXIMAB-PVVR
     Dosage: 667.125 MG, WEEKLY FOR 4 WEEKS
     Route: 042
     Dates: start: 20201027, end: 20201027
  6. RUXIENCE [Suspect]
     Active Substance: RITUXIMAB-PVVR
     Dosage: 667.125 MG, WEEKLY FOR 4 WEEKS
     Route: 042
     Dates: start: 20201103, end: 20201103
  7. RUXIENCE [Suspect]
     Active Substance: RITUXIMAB-PVVR
     Dosage: 667.125 MG, WEEKLY FOR 4 WEEKS
     Route: 042
     Dates: start: 20201103, end: 20201103
  8. RUXIENCE [Suspect]
     Active Substance: RITUXIMAB-PVVR
     Dosage: 667.125 MG, WEEKLY FOR 4 WEEKS
     Route: 042
     Dates: start: 20201103, end: 20201103
  9. RUXIENCE [Suspect]
     Active Substance: RITUXIMAB-PVVR
     Dosage: 667.125 MG, WEEKLY FOR 4 WEEKS
     Route: 042
     Dates: start: 20201110
  10. RUXIENCE [Suspect]
     Active Substance: RITUXIMAB-PVVR
     Dosage: 667.125 MG, WEEKLY FOR 4 WEEKS
     Route: 042
     Dates: start: 20201110
  11. RUXIENCE [Suspect]
     Active Substance: RITUXIMAB-PVVR
     Dosage: UNK
     Route: 042
     Dates: start: 20201120
  12. RUXIENCE [Suspect]
     Active Substance: RITUXIMAB-PVVR
     Dosage: 735 MG, WEEKLY (FOR 4 WEEKS)
     Route: 042
     Dates: start: 20210405, end: 20210426
  13. RUXIENCE [Suspect]
     Active Substance: RITUXIMAB-PVVR
     Dosage: UNK
     Route: 042
     Dates: start: 20210405
  14. RUXIENCE [Suspect]
     Active Substance: RITUXIMAB-PVVR
     Dosage: UNK
     Route: 042
     Dates: start: 20210405
  15. RUXIENCE [Suspect]
     Active Substance: RITUXIMAB-PVVR
     Dosage: UNK
     Route: 042
     Dates: start: 20210405
  16. RUXIENCE [Suspect]
     Active Substance: RITUXIMAB-PVVR
     Dosage: 735 MG
     Route: 042
     Dates: start: 20210412, end: 20210412
  17. RUXIENCE [Suspect]
     Active Substance: RITUXIMAB-PVVR
     Dosage: 735 MG
     Route: 042
     Dates: start: 20210412, end: 20210412
  18. RUXIENCE [Suspect]
     Active Substance: RITUXIMAB-PVVR
     Dosage: 735 MG
     Route: 042
     Dates: start: 20210412, end: 20210412
  19. RUXIENCE [Suspect]
     Active Substance: RITUXIMAB-PVVR
     Dosage: 735 MG
     Route: 042
     Dates: start: 20210419, end: 20210419
  20. RUXIENCE [Suspect]
     Active Substance: RITUXIMAB-PVVR
     Dosage: 735 MG
     Route: 042
     Dates: start: 20210419, end: 20210419
  21. RUXIENCE [Suspect]
     Active Substance: RITUXIMAB-PVVR
     Dosage: 735 MG, WEEKLY (FOR 4 WEEKS)
     Route: 042
     Dates: start: 20210426
  22. RUXIENCE [Suspect]
     Active Substance: RITUXIMAB-PVVR
     Dosage: 720 MG, WEEKLY, FOR 4 WEEKS
     Route: 042
     Dates: start: 20211206
  23. RUXIENCE [Suspect]
     Active Substance: RITUXIMAB-PVVR
     Dosage: 720 MG, WEEKLY, FOR 4 WEEKS
     Route: 042
     Dates: start: 20211206
  24. RUXIENCE [Suspect]
     Active Substance: RITUXIMAB-PVVR
     Dosage: 720 MG WEEKLY, FOR 4 WEEKS
     Route: 042
     Dates: start: 20211213
  25. RUXIENCE [Suspect]
     Active Substance: RITUXIMAB-PVVR
     Dosage: 720 MG WEEKLY, FOR 4 WEEKS
     Route: 042
     Dates: start: 20211213
  26. RUXIENCE [Suspect]
     Active Substance: RITUXIMAB-PVVR
     Dosage: 572 MG
     Route: 042
     Dates: start: 20211220
  27. RUXIENCE [Suspect]
     Active Substance: RITUXIMAB-PVVR
     Dosage: 572 MG
     Route: 042
     Dates: start: 20211220
  28. RUXIENCE [Suspect]
     Active Substance: RITUXIMAB-PVVR
     Dosage: 720 MG (SUPPOSED TO RECEIVE 667.125MG)
     Route: 042
     Dates: start: 20211228
  29. ACETAMINOPHEN [Concomitant]
     Active Substance: ACETAMINOPHEN
     Indication: Premedication
     Dosage: 650 MG
     Route: 048
     Dates: start: 20201020, end: 20201020
  30. CALCIUM [Concomitant]
     Active Substance: CALCIUM
     Dosage: UNK
     Route: 065
  31. DAPSONE [Concomitant]
     Active Substance: DAPSONE
     Dosage: 100 MG, UNKNOWN FREQUENCY
     Route: 065
  32. DIPHENHYDRAMINE [Concomitant]
     Active Substance: DIPHENHYDRAMINE
     Indication: Premedication
     Dosage: 50 MG
     Route: 048
     Dates: start: 20201020, end: 20201020
  33. METHYLPREDNISOLONE [Concomitant]
     Active Substance: METHYLPREDNISOLONE
     Indication: Premedication
     Dosage: 100 MG
     Route: 042
     Dates: start: 20201020, end: 20201020

REACTIONS (17)
  - Dyspnoea [Recovered/Resolved]
  - Throat tightness [Unknown]
  - Dysphagia [Unknown]
  - Infusion related reaction [Unknown]
  - Off label use [Unknown]
  - Inappropriate schedule of product administration [Unknown]
  - Intentional product use issue [Unknown]
  - Product use issue [Unknown]
  - Incorrect dose administered [Unknown]
  - COVID-19 [Unknown]
  - Condition aggravated [Not Recovered/Not Resolved]
  - Dizziness [Recovered/Resolved]
  - Headache [Unknown]
  - Fatigue [Unknown]
  - Vulvovaginal rash [Not Recovered/Not Resolved]
  - Vasculitis [Unknown]
  - Vulvovaginal pruritus [Not Recovered/Not Resolved]

NARRATIVE: CASE EVENT DATE: 20201020
